FAERS Safety Report 9120569 (Version 1)
Quarter: 2013Q1

REPORT INFORMATION
  Report Type: Spontaneous
  Country: JP (occurrence: JP)
  Receive Date: 20130226
  Receipt Date: 20130226
  Transmission Date: 20140127
  Serious: Yes (Other)
  Sender: FDA-Public Use
  Company Number: JP-B.I. PHARMACEUTICALS,INC./RIDGEFIELD-2013-BI-05233YA

PATIENT
  Age: 78 Year
  Sex: Male

DRUGS (2)
  1. HARNAL [Suspect]
     Dosage: 0.2 MG
     Route: 048
     Dates: start: 20130125
  2. VALTREX (VALACICLOVIR HYDROCHLORIDE) [Concomitant]
     Route: 048
     Dates: start: 20130125

REACTIONS (1)
  - Intraocular pressure increased [Unknown]
